FAERS Safety Report 6004281-2 (Version None)
Quarter: 2008Q4

REPORT INFORMATION
  Report Type: 
  Country: None (occurrence: None)
  Receive Date: 20081216
  Receipt Date: 20081204
  Transmission Date: 20090506
  Serious: Yes (Hospitalization)
  Sender: FDA-Public Use
  Company Number: DE-BAYER-200832626GPV

PATIENT
  Age: 71 Year
  Sex: Male

DRUGS (6)
  1. CAMPATH [Suspect]
     Indication: T-CELL LYMPHOMA
     Route: 058
     Dates: start: 20080502
  2. CYCLOPHOSPHAMIDE [Suspect]
     Indication: T-CELL LYMPHOMA
     Route: 042
  3. DOXORUBICIN HCL [Suspect]
     Indication: T-CELL LYMPHOMA
     Route: 042
  4. VINCRISTINE [Suspect]
     Indication: T-CELL LYMPHOMA
     Route: 042
  5. PREDNISONE [Suspect]
     Indication: T-CELL LYMPHOMA
     Route: 048
  6. NEUPOGEN [Suspect]
     Indication: T-CELL LYMPHOMA
     Route: 058

REACTIONS (1)
  - PYREXIA [None]
